FAERS Safety Report 5748804-7 (Version None)
Quarter: 2008Q2

REPORT INFORMATION
  Report Type: 
  Country: None (occurrence: None)
  Receive Date: 20080521
  Receipt Date: 20080509
  Transmission Date: 20081010
  Serious: Yes (Death, Hospitalization)
  Sender: FDA-Public Use
  Company Number: 220001J07AUS

PATIENT
  Age: 5 Year
  Sex: Female

DRUGS (2)
  1. SAIZEN [Suspect]
     Indication: GROWTH HORMONE DEFICIENCY
     Dosage: 1 IN 1 DAYS, SUBCUTANEOUS
     Route: 058
  2. VALPROATE SODIUM [Concomitant]

REACTIONS (9)
  - ACUTE HEPATIC FAILURE [None]
  - COAGULOPATHY [None]
  - COMA [None]
  - CONVULSION [None]
  - ENCEPHALOPATHY [None]
  - HYPOGLYCAEMIA [None]
  - LETHARGY [None]
  - MALAISE [None]
  - MITOCHONDRIAL HEPATOPATHY [None]
